FAERS Safety Report 13601127 (Version 1)
Quarter: 2017Q2

REPORT INFORMATION
  Report Type: Spontaneous
  Country: US (occurrence: US)
  Receive Date: 20170601
  Receipt Date: 20170601
  Transmission Date: 20170830
  Serious: Yes (Hospitalization)
  Sender: FDA-Public Use
  Company Number: None

PATIENT
  Age: 4 Year
  Sex: Male
  Weight: 18.5 kg

DRUGS (6)
  1. CYTARABINE. [Suspect]
     Active Substance: CYTARABINE
     Dates: end: 20170427
  2. VINCRISTINE SULFATE. [Suspect]
     Active Substance: VINCRISTINE SULFATE
     Dates: end: 20170518
  3. METHOTREXATE. [Suspect]
     Active Substance: METHOTREXATE
     Dates: end: 20170504
  4. ONCASPAR [Suspect]
     Active Substance: PEGASPARGASE
     Dates: end: 20170515
  5. DEXAMETHASONE. [Suspect]
     Active Substance: DEXAMETHASONE
     Dates: end: 20170518
  6. DAUNORUBICIN [Suspect]
     Active Substance: DAUNORUBICIN
     Dates: end: 20170518

REACTIONS (16)
  - Brain natriuretic peptide increased [None]
  - Peripheral coldness [None]
  - Hyperbilirubinaemia [None]
  - Transaminases increased [None]
  - Abdominal pain [None]
  - Toxicity to various agents [None]
  - Hyponatraemia [None]
  - Enteritis [None]
  - Sepsis [None]
  - Hypertriglyceridaemia [None]
  - Pneumonia [None]
  - Blood lactic acid increased [None]
  - Heart sounds abnormal [None]
  - Cardiac failure [None]
  - Respiratory disorder [None]
  - Blood culture positive [None]

NARRATIVE: CASE EVENT DATE: 20170527
